FAERS Safety Report 18245814 (Version 1)
Quarter: 2020Q3

REPORT INFORMATION
  Report Type: Spontaneous
  Country: CN (occurrence: CN)
  Receive Date: 20200909
  Receipt Date: 20200909
  Transmission Date: 20201103
  Serious: Yes (Other)
  Sender: FDA-Public Use
  Company Number: CN-ROCHE-2672945

PATIENT
  Age: 67 Year
  Sex: Female

DRUGS (5)
  1. MABTHERA [Suspect]
     Active Substance: RITUXIMAB
     Indication: SPLENIC MARGINAL ZONE LYMPHOMA
     Route: 065
     Dates: end: 202009
  2. PREDNISONE. [Concomitant]
     Active Substance: PREDNISONE
  3. CYCLOPHOSPHAMIDE. [Concomitant]
     Active Substance: CYCLOPHOSPHAMIDE
  4. VINCRISTINE [Concomitant]
     Active Substance: VINCRISTINE
  5. DOXORUBICIN [Concomitant]
     Active Substance: DOXORUBICIN

REACTIONS (6)
  - Dyspnoea [Unknown]
  - Off label use [Unknown]
  - Poor quality product administered [Unknown]
  - Intentional product use issue [Unknown]
  - Asphyxia [Unknown]
  - Chest discomfort [Unknown]

NARRATIVE: CASE EVENT DATE: 202009
